FAERS Safety Report 10272454 (Version 1)
Quarter: 2014Q2

REPORT INFORMATION
  Report Type: Spontaneous
  Country: US (occurrence: None)
  Receive Date: 20140627
  Receipt Date: 20140627
  Transmission Date: 20141212
  Serious: Yes (Hospitalization)
  Sender: FDA-Public Use
  Company Number: 14AE028

PATIENT
  Sex: Female

DRUGS (1)
  1. WALGREEN ACETAMINOPHEN 500 MG FILM COATED RED SWEET TABLETS [Suspect]
     Indication: PYREXIA

REACTIONS (4)
  - Feeling abnormal [None]
  - Dizziness [None]
  - Cardiac disorder [None]
  - Nausea [None]
